FAERS Safety Report 9013972 (Version 1)
Quarter: 2013Q1

REPORT INFORMATION
  Report Type: Spontaneous
  Country: JP (occurrence: JP)
  Receive Date: 20130115
  Receipt Date: 20130115
  Transmission Date: 20140127
  Serious: Yes (Hospitalization, Other)
  Sender: FDA-Public Use
  Company Number: JP-PFIZER INC-2013011910

PATIENT
  Age: 74 Year
  Sex: Female

DRUGS (5)
  1. QUETIAPINE FUMARATE [Suspect]
     Dosage: 25 MG, 1X/DAY
  2. DIAZEPAM [Suspect]
     Dosage: 2.5 MG, UNK
     Route: 042
  3. HALOPERIDOL [Suspect]
     Dosage: 2.5 MG, UNK
     Route: 042
  4. CLOMIPRAMINE [Suspect]
     Dosage: 12.5 MG, UNK
     Route: 042
  5. MIRTAZAPINE [Concomitant]
     Indication: INSOMNIA
     Dosage: 30 MG, 1X/DAY

REACTIONS (8)
  - Hallucination [Recovered/Resolved]
  - Delusion [Recovered/Resolved]
  - Stupor [Recovered/Resolved]
  - Tremor [Recovered/Resolved]
  - Parkinsonian rest tremor [Recovered/Resolved]
  - Muscle rigidity [Recovered/Resolved]
  - Dyskinesia [Recovered/Resolved]
  - Drug ineffective [Recovered/Resolved]
